FAERS Safety Report 8190618-5 (Version None)
Quarter: 2012Q1

REPORT INFORMATION
  Report Type: 
  Country: None (occurrence: None)
  Receive Date: 20120307
  Receipt Date: 20120207
  Transmission Date: 20120608
  Serious: Yes (Death, Life-Threatening, Hospitalization)
  Sender: FDA-Public Use
  Company Number: US-ROCHE-1023530

PATIENT
  Age: 60 Year
  Sex: Female
  Weight: 65.3 kg

DRUGS (4)
  1. PACLITAXEL [Suspect]
     Indication: MALIGNANT PERITONEAL NEOPLASM
     Dosage: TOTAL DOSE ADMINISTERED THIS COURSE (2): : 230 MG
     Route: 042
     Dates: start: 20111011
  2. AVASTIN [Suspect]
     Indication: MALIGNANT PERITONEAL NEOPLASM
     Dosage: TOTAL DOSE ADMINISTERED THIS COURSE (2): ON 2/NOV/2011: 980 MG
     Route: 042
  3. PACLITAXEL [Suspect]
     Route: 033
  4. CISPLATIN [Suspect]
     Indication: MALIGNANT PERITONEAL NEOPLASM
     Dosage: TOTAL DOSE ADMINISTERED THIS COURSE (2): 125 MG
     Route: 033
     Dates: start: 20111111

REACTIONS (10)
  - JEJUNAL FISTULA [None]
  - MULTI-ORGAN FAILURE [None]
  - RESPIRATORY FAILURE [None]
  - DEPRESSED LEVEL OF CONSCIOUSNESS [None]
  - ABDOMINAL INFECTION [None]
  - JEJUNAL PERFORATION [None]
  - HYPERNATRAEMIA [None]
  - CEREBROVASCULAR ACCIDENT [None]
  - CONFUSIONAL STATE [None]
  - HAEMORRHAGE INTRACRANIAL [None]
